FAERS Safety Report 14788891 (Version 2)
Quarter: 2018Q3

REPORT INFORMATION
  Report Type: Spontaneous
  Country: IT (occurrence: IT)
  Receive Date: 20180423
  Receipt Date: 20180801
  Transmission Date: 20181010
  Serious: Yes (Other)
  Sender: FDA-Public Use
  Company Number: IT-AUROBINDO-AUR-APL-2018-021289

PATIENT
  Age: 98 Year
  Sex: Female

DRUGS (4)
  1. LORAZEPAM. [Suspect]
     Active Substance: LORAZEPAM
     Indication: ANXIETY
     Dosage: 2.5 MILLIGRAM, AS NECESSARY
     Route: 048
     Dates: start: 20140101, end: 20171130
  2. BISOPROLOL [Suspect]
     Active Substance: BISOPROLOL
     Indication: CORONARY ARTERY DISEASE
     Dosage: 5 MILLIGRAM, DAILY
     Route: 048
     Dates: start: 20140101
  3. PARACETAMOL [Suspect]
     Active Substance: ACETAMINOPHEN
     Indication: SPINAL OSTEOARTHRITIS
     Dosage: 1000 MILLIGRAM, CYCLICAL
     Route: 048
     Dates: start: 20171101
  4. RAMIPRIL. [Suspect]
     Active Substance: RAMIPRIL
     Indication: HYPERTENSION
     Dosage: 5 MILLIGRAM, DAILY
     Route: 048
     Dates: start: 20140101, end: 20171130

REACTIONS (1)
  - Cerebrovascular accident [Recovering/Resolving]

NARRATIVE: CASE EVENT DATE: 20171130
